FAERS Safety Report 16582616 (Version 1)
Quarter: 2019Q3

REPORT INFORMATION
  Report Type: Spontaneous
  Country: US (occurrence: US)
  Receive Date: 20190716
  Receipt Date: 20190716
  Transmission Date: 20191004
  Serious: Yes (Other)
  Sender: FDA-Public Use
  Company Number: None

PATIENT
  Age: 42 Year
  Sex: Male

DRUGS (4)
  1. BUPRENORPHINE/NALAXONE FILMS [Suspect]
     Active Substance: BUPRENORPHINE\NALOXONE
     Indication: DRUG DEPENDENCE
     Route: 048
     Dates: start: 20190628
  2. BUPRENORPHINE NALOXONE 8-NG TABLETS [Suspect]
     Active Substance: BUPRENORPHINE\NALOXONE
     Dates: start: 20180319, end: 20180912
  3. BUPRENORPHINE NALOXONE 8-2MG TABLETS [Suspect]
     Active Substance: BUPRENORPHINE HYDROCHLORIDE\NALOXONE HYDROCHLORIDE
  4. SUBOXONE [Suspect]
     Active Substance: BUPRENORPHINE HYDROCHLORIDE\NALOXONE HYDROCHLORIDE
     Dates: start: 20180913, end: 20181026

REACTIONS (4)
  - Withdrawal syndrome [None]
  - Therapeutic product effect incomplete [None]
  - Product substitution issue [None]
  - Drug dependence [None]

NARRATIVE: CASE EVENT DATE: 20190716
